FAERS Safety Report 8315004 (Version 2)
Quarter: 2013Q2

REPORT INFORMATION
  Report Type: Spontaneous
  Country: US (occurrence: US)
  Receive Date: 20111229
  Receipt Date: 20130613
  Transmission Date: 20140414
  Serious: No
  Sender: FDA-Public Use
  Company Number: US-BAYER-2011-123940

PATIENT
  Age: 26 Year
  Sex: Female

DRUGS (1)
  1. FINACEA [Suspect]
     Indication: ROSACEA
     Dosage: UNK UNK, BID
     Route: 062
     Dates: start: 201112

REACTIONS (3)
  - Pain [Recovering/Resolving]
  - Burning sensation [Recovering/Resolving]
  - Rash maculo-papular [Recovering/Resolving]
